FAERS Safety Report 10467660 (Version 1)
Quarter: 2014Q3

REPORT INFORMATION
  Report Type: Spontaneous
  Country: US (occurrence: US)
  Receive Date: 20140922
  Receipt Date: 20140922
  Transmission Date: 20150326
  Serious: Yes (Other)
  Sender: FDA-Public Use
  Company Number: US-GLAXOSMITHKLINE-A1090203A

PATIENT
  Age: 82 Year
  Sex: Female

DRUGS (3)
  1. CYMBALTA [Suspect]
     Active Substance: DULOXETINE HYDROCHLORIDE
     Indication: PRODUCT USED FOR UNKNOWN INDICATION
     Route: 065
  2. BUPROPION [Suspect]
     Active Substance: BUPROPION
     Indication: PRODUCT USED FOR UNKNOWN INDICATION
     Route: 065
  3. CHANTIX [Suspect]
     Active Substance: VARENICLINE TARTRATE
     Indication: PRODUCT USED FOR UNKNOWN INDICATION
     Route: 065

REACTIONS (27)
  - Nausea [Unknown]
  - Dysgeusia [Unknown]
  - Suicidal ideation [Unknown]
  - Brain neoplasm [Unknown]
  - Agitation [Unknown]
  - Head discomfort [Unknown]
  - Decreased interest [Unknown]
  - Feeling abnormal [Unknown]
  - Restless legs syndrome [Unknown]
  - Vision blurred [Unknown]
  - Intracranial pressure increased [Unknown]
  - Ill-defined disorder [Unknown]
  - Tearfulness [Unknown]
  - Confusional state [Unknown]
  - Depression [Unknown]
  - Insomnia [Unknown]
  - Balance disorder [Unknown]
  - Frustration [Unknown]
  - Crying [Unknown]
  - Memory impairment [Unknown]
  - Eating disorder [Unknown]
  - Anxiety [Unknown]
  - Formication [Unknown]
  - Amnesia [Unknown]
  - Nervous system disorder [Unknown]
  - Disturbance in attention [Unknown]
  - Visual acuity reduced [Unknown]
